FAERS Safety Report 5884737-3 (Version None)
Quarter: 2008Q3

REPORT INFORMATION
  Report Type: 
  Country: None (occurrence: None)
  Receive Date: 20080915
  Receipt Date: 20080915
  Transmission Date: 20090109
  Serious: No
  Sender: FDA-Public Use
  Company Number: None

PATIENT

DRUGS (3)
  1. ADVATE [Suspect]
     Indication: FACTOR VIII DEFICIENCY
     Dosage: 1594 UNITS EVERY OTHER DAY + IV BOLUS
     Route: 040
     Dates: start: 20080801, end: 20080914
  2. ADVATE [Suspect]
     Indication: PROPHYLAXIS
     Dosage: 1594 UNITS EVERY OTHER DAY + IV BOLUS
     Route: 040
     Dates: start: 20080801, end: 20080914
  3. ADVATE [Suspect]

REACTIONS (1)
  - PHARMACEUTICAL PRODUCT COMPLAINT [None]
